FAERS Safety Report 9539180 (Version 1)
Quarter: 2013Q2

REPORT INFORMATION
  Report Type: Spontaneous
  Country: US (occurrence: None)
  Receive Date: 20130507
  Receipt Date: 20130507
  Transmission Date: 20140414
  Serious: No
  Sender: FDA-Public Use
  Company Number: PHEH2013US003070

PATIENT
  Sex: Female
  Weight: 79.1 kg

DRUGS (1)
  1. AFINITOR (RAD) TABLET, 10MG [Suspect]
     Indication: RENAL CELL CARCINOMA
     Route: 048
     Dates: start: 20120306, end: 20120415

REACTIONS (2)
  - Renal cell carcinoma [None]
  - Malignant neoplasm progression [None]
